FAERS Safety Report 8046590-1 (Version None)
Quarter: 2012Q1

REPORT INFORMATION
  Report Type: 
  Country: None (occurrence: None)
  Receive Date: 20120113
  Receipt Date: 20111214
  Transmission Date: 20120608
  Serious: Yes (Hospitalization)
  Sender: FDA-Public Use
  Company Number: CA-ROCHE-1022052

PATIENT
  Sex: Male
  Weight: 74.91 kg

DRUGS (10)
  1. ACTEMRA [Suspect]
     Indication: RHEUMATOID ARTHRITIS
     Dosage: THERAPY INTERRUPTED DUE TO AE
     Route: 042
  2. PREDNISONE [Concomitant]
  3. TRAMADOL HCL [Concomitant]
  4. VITAMIN D [Concomitant]
  5. CRESTOR [Concomitant]
  6. ACTEMRA [Suspect]
     Route: 042
  7. FOLIC ACID [Concomitant]
  8. METHOTREXATE [Concomitant]
  9. ASPIRIN [Concomitant]
  10. STEROID (UNK INGREDIENTS) [Concomitant]
     Route: 058
     Dates: start: 20110701

REACTIONS (3)
  - LUNG NEOPLASM [None]
  - CHEST PAIN [None]
  - RHEUMATOID ARTHRITIS [None]
